FAERS Safety Report 20483805 (Version 1)
Quarter: 2022Q1

REPORT INFORMATION
  Report Type: Spontaneous
  Country: US (occurrence: US)
  Receive Date: 20220217
  Receipt Date: 20220217
  Transmission Date: 20220423
  Serious: No
  Sender: FDA-Public Use
  Company Number: US-BAYER-2022A022062

PATIENT
  Age: 6 Year
  Sex: Male

DRUGS (3)
  1. CLARITIN [Suspect]
     Active Substance: LORATADINE
     Dosage: 5 MG, QD
  2. OMALIZUMAB [Concomitant]
     Active Substance: OMALIZUMAB
     Dosage: 300 MG, Q1MON
     Route: 058
  3. ANTIHISTAMINE ALLERGY RELIEF [Concomitant]

REACTIONS (1)
  - Drug ineffective [None]
